FAERS Safety Report 25377514 (Version 2)
Quarter: 2025Q3

REPORT INFORMATION
  Report Type: Spontaneous
  Country: US (occurrence: US)
  Receive Date: 20250530
  Receipt Date: 20250708
  Transmission Date: 20251020
  Serious: Yes (Life-Threatening, Hospitalization)
  Sender: AMGEN
  Company Number: US-AMGEN-USASP2025101905

PATIENT
  Age: 32 Year
  Sex: Female

DRUGS (4)
  1. ADALIMUMAB [Suspect]
     Active Substance: ADALIMUMAB
     Indication: Crohn^s disease
     Route: 065
  2. AZATHIOPRINE [Concomitant]
     Active Substance: AZATHIOPRINE
     Indication: Crohn^s disease
  3. BUDESONIDE [Concomitant]
     Active Substance: BUDESONIDE
     Indication: Crohn^s disease
     Route: 054
  4. HYDROCORTISONE [Concomitant]
     Active Substance: HYDROCORTISONE
     Indication: Crohn^s disease
     Route: 054

REACTIONS (17)
  - Haematoma [Unknown]
  - Pelvic haemorrhage [Unknown]
  - Blood loss anaemia [Unknown]
  - Blood pressure increased [Unknown]
  - Dysuria [Unknown]
  - Epistaxis [Unknown]
  - Gingival bleeding [Unknown]
  - Hypotension [Unknown]
  - Intra-abdominal haemorrhage [Unknown]
  - Maternal exposure during pregnancy [Unknown]
  - Pre-eclampsia [Unknown]
  - Vitamin K deficiency [Unknown]
  - Coagulopathy [Recovered/Resolved]
  - Alanine aminotransferase increased [Unknown]
  - Beta haemolytic streptococcal infection [Unknown]
  - Contusion [Unknown]
  - Therapy partial responder [Unknown]
